APPROVED DRUG PRODUCT: MILRINONE LACTATE
Active Ingredient: MILRINONE LACTATE
Strength: EQ 1MG BASE/ML
Dosage Form/Route: INJECTABLE;INJECTION
Application: A077190 | Product #001
Applicant: GLAND PHARMA LTD
Approved: Oct 31, 2006 | RLD: No | RS: No | Type: DISCN